FAERS Safety Report 7070406-3 (Version None)
Quarter: 2010Q4

REPORT INFORMATION
  Report Type: 
  Country: None (occurrence: None)
  Receive Date: 20101029
  Receipt Date: 20101021
  Transmission Date: 20110411
  Serious: Yes (Hospitalization)
  Sender: FDA-Public Use
  Company Number: US-BIOGENIDEC-2010BI034763

PATIENT
  Age: 56 Year
  Sex: Female

DRUGS (2)
  1. AVONEX [Suspect]
     Indication: MULTIPLE SCLEROSIS
     Route: 030
     Dates: start: 20050530
  2. GABAPENTIN [Concomitant]

REACTIONS (4)
  - CENTRAL NERVOUS SYSTEM LESION [None]
  - EXOSTOSIS [None]
  - FATIGUE [None]
  - PARAESTHESIA [None]
